FAERS Safety Report 22364590 (Version 2)
Quarter: 2023Q2

REPORT INFORMATION
  Report Type: Spontaneous
  Country: US (occurrence: US)
  Receive Date: 20230525
  Receipt Date: 20230627
  Transmission Date: 20230722
  Serious: No
  Sender: FDA-Public Use
  Company Number: US-UNITED THERAPEUTICS-UNT-2023-014376

PATIENT
  Sex: Female

DRUGS (3)
  1. REMODULIN [Suspect]
     Active Substance: TREPROSTINIL
     Indication: Pulmonary arterial hypertension
     Dosage: 0.0626 ?G/KG (AT THE PUMP RATE OF 0.034 ML/HR), CONTINUING
     Route: 058
  2. REMODULIN [Suspect]
     Active Substance: TREPROSTINIL
     Dosage: UNK (AT THE PUMP RATE OF 0.032 ML/HR), CONTINUING
     Route: 058
  3. REMODULIN [Suspect]
     Active Substance: TREPROSTINIL
     Dosage: UNK, CONTINUING
     Route: 058
     Dates: start: 202104

REACTIONS (8)
  - Needle issue [Unknown]
  - Illness [Recovered/Resolved]
  - Device dislocation [Recovered/Resolved]
  - Diarrhoea [Unknown]
  - Headache [Unknown]
  - Flushing [Unknown]
  - Nasal congestion [Unknown]
  - Incorrect dose administered [Unknown]
